FAERS Safety Report 8687246 (Version 50)
Quarter: 2019Q3

REPORT INFORMATION
  Report Type: Report from Study
  Country: CA (occurrence: CA)
  Receive Date: 20120727
  Receipt Date: 20190916
  Transmission Date: 20191005
  Serious: Yes (Hospitalization, Other)
  Sender: FDA-Public Use
  Company Number: PHHY2012CA064297

PATIENT
  Age: 68 Year
  Sex: Female

DRUGS (14)
  1. SANDOSTATIN [Suspect]
     Active Substance: OCTREOTIDE ACETATE
     Dosage: 200 UG, TID
     Route: 058
  2. SANDOSTATIN LAR DEPOT [Suspect]
     Active Substance: OCTREOTIDE ACETATE
     Indication: NEUROENDOCRINE TUMOUR
     Dosage: 30 MG, QMO (EVERY 4 WEEKS)
     Route: 030
     Dates: start: 20120704
  3. SANDOSTATIN LAR DEPOT [Suspect]
     Active Substance: OCTREOTIDE ACETATE
     Dosage: 60 MG, QMO (EVERY 28 DAYS)
     Route: 030
     Dates: end: 20150316
  4. SANDOSTATIN [Suspect]
     Active Substance: OCTREOTIDE ACETATE
     Dosage: 200 UG, TID
     Route: 058
     Dates: end: 20120711
  5. SANDOSTATIN LAR DEPOT [Suspect]
     Active Substance: OCTREOTIDE ACETATE
     Dosage: 30 MG, QMO (EVERY 28 DAYS)
     Route: 030
  6. AMLODIPINE [Concomitant]
     Active Substance: AMLODIPINE BESYLATE
     Dosage: 5 MG
     Route: 065
  7. SANDOSTATIN [Suspect]
     Active Substance: OCTREOTIDE ACETATE
     Indication: NEUROENDOCRINE TUMOUR
     Dosage: UNK/ 7 DAYS POST LAR
     Route: 058
     Dates: start: 2012, end: 2012
  8. SANDOSTATIN LAR DEPOT [Suspect]
     Active Substance: OCTREOTIDE ACETATE
     Dosage: 30 MG, EVERY 21 DAYS
     Route: 030
  9. SANDOSTATIN [Suspect]
     Active Substance: OCTREOTIDE ACETATE
     Dosage: UNK UKN, Q12H
     Route: 058
     Dates: start: 20120814
  10. SANDOSTATIN [Suspect]
     Active Substance: OCTREOTIDE ACETATE
     Dosage: UNK UNK, PRN
     Route: 058
     Dates: start: 201604
  11. AFINITOR [Concomitant]
     Active Substance: EVEROLIMUS
     Indication: NEUROENDOCRINE TUMOUR
     Dosage: UNK
     Route: 048
  12. SANDOSTATIN LAR DEPOT [Suspect]
     Active Substance: OCTREOTIDE ACETATE
     Dosage: 30 MG, TIW EVERY 3 WEEKS
     Route: 030
  13. SANDOSTATIN LAR DEPOT [Suspect]
     Active Substance: OCTREOTIDE ACETATE
     Dosage: 30 MG, QMO (EVERY 4 WEEKS)
     Route: 030
  14. AMLODIPINE [Concomitant]
     Active Substance: AMLODIPINE BESYLATE
     Indication: PRODUCT USED FOR UNKNOWN INDICATION
     Dosage: 10 MG
     Route: 065

REACTIONS (47)
  - Intestinal obstruction [Recovered/Resolved]
  - Pain [Unknown]
  - Biliary colic [Recovered/Resolved]
  - Throat irritation [Unknown]
  - Pollakiuria [Unknown]
  - Hot flush [Unknown]
  - Muscle strain [Unknown]
  - Liver function test increased [Unknown]
  - Alopecia [Unknown]
  - Blood glucose fluctuation [Unknown]
  - Diabetes mellitus [Unknown]
  - Diarrhoea [Not Recovered/Not Resolved]
  - Sleep disorder [Not Recovered/Not Resolved]
  - Injection site mass [Unknown]
  - Abdominal distension [Unknown]
  - Flushing [Recovering/Resolving]
  - Pain in extremity [Unknown]
  - Hepatic neoplasm [Unknown]
  - Bursitis [Unknown]
  - Dyspnoea [Unknown]
  - Abdominal pain [Unknown]
  - Inappropriate schedule of product administration [Unknown]
  - Sinus congestion [Unknown]
  - Arthralgia [Not Recovered/Not Resolved]
  - Hepatic cirrhosis [Unknown]
  - Deafness [Unknown]
  - Blood pressure systolic increased [Unknown]
  - Sinusitis [Unknown]
  - Arthritis [Unknown]
  - Musculoskeletal pain [Unknown]
  - Vomiting [Unknown]
  - Blood glucose decreased [Unknown]
  - Asthenia [Unknown]
  - Limb discomfort [Unknown]
  - Dizziness [Unknown]
  - Constipation [Unknown]
  - Abdominal pain upper [Unknown]
  - Injection site pain [Recovered/Resolved]
  - Muscle spasms [Recovered/Resolved]
  - Back pain [Unknown]
  - Musculoskeletal chest pain [Unknown]
  - Bowel movement irregularity [Not Recovered/Not Resolved]
  - Needle issue [Unknown]
  - Fatigue [Unknown]
  - Renal impairment [Unknown]
  - Blood test abnormal [Unknown]
  - Urine analysis abnormal [Unknown]

NARRATIVE: CASE EVENT DATE: 20120720
